FAERS Safety Report 6339127-6 (Version None)
Quarter: 2009Q3

REPORT INFORMATION
  Report Type: 
  Country: None (occurrence: None)
  Receive Date: 20090903
  Receipt Date: 20090831
  Transmission Date: 20100115
  Serious: Yes (Death)
  Sender: FDA-Public Use
  Company Number: FR-BRISTOL-MYERS SQUIBB COMPANY-14761936

PATIENT
  Age: 64 Year
  Sex: Male

DRUGS (2)
  1. ORENCIA [Suspect]
     Dosage: TOTAL INF-20; RECENT INF- 3 TO 5 DAYS BEFORE DEATH
     Dates: start: 20080101, end: 20090801
  2. CORTICOSTEROID [Concomitant]

REACTIONS (1)
  - CARDIAC FAILURE [None]
